FAERS Safety Report 8833341 (Version 3)
Quarter: 2012Q4

REPORT INFORMATION
  Report Type: 
  Country: US (occurrence: US)
  Receive Date: 20121010
  Receipt Date: 20121121
  Transmission Date: 20130627
  Serious: Yes (Death, Hospitalization, Other)
  Sender: FDA-Public Use
  Company Number: US-PFIZER INC-2012248846

PATIENT
  Age: 76 Year
  Sex: Female
  Weight: 87.08 kg

DRUGS (6)
  1. VFEND [Suspect]
     Indication: ASPERGILLOSIS
     Dosage: 200 mg, daily
     Dates: start: 201009, end: 201207
  2. LYRICA [Concomitant]
     Indication: NEUROPATHY PERIPHERAL
     Dosage: 150 mg, 2x/day
  3. LIPITOR [Concomitant]
     Indication: HIGH CHOLESTEROL
     Dosage: 10 mg, daily
  4. LANTUS [Concomitant]
     Indication: DIABETES
     Dosage: 20 units daily
  5. APIDRA [Concomitant]
     Indication: DIABETES
     Dosage: unknown dose daily
  6. TOPROL XL [Concomitant]
     Indication: BLOOD PRESSURE HIGH
     Dosage: 25 mg, daily

REACTIONS (6)
  - Breast cancer metastatic [Fatal]
  - Metastases to lung [Fatal]
  - Respiratory failure [Fatal]
  - Pneumonia [Fatal]
  - Hip fracture [Unknown]
  - Fall [Unknown]
